FAERS Safety Report 5106968-2 (Version None)
Quarter: 2006Q3

REPORT INFORMATION
  Report Type: 
  Country: None (occurrence: None)
  Receive Date: 20060913
  Receipt Date: 20060829
  Transmission Date: 20061208
  Serious: Yes (Hospitalization, Other)
  Sender: FDA-Public Use
  Company Number: US-2006-013756

PATIENT
  Age: 42 Year
  Sex: Female
  Weight: 117.5 kg

DRUGS (4)
  1. BETASERON [Suspect]
     Indication: MULTIPLE SCLEROSIS
     Dosage: 2 MIU, EVERY 2D, SUBCUTANEOUS
     Route: 058
     Dates: start: 20060512, end: 20060527
  2. LOTREL [Concomitant]
  3. BACLOFEN [Concomitant]
  4. NEURONTIN [Concomitant]

REACTIONS (14)
  - ABASIA [None]
  - EAR PAIN [None]
  - GINGIVAL PRURITUS [None]
  - GINGIVAL SWELLING [None]
  - HEAD INJURY [None]
  - HEADACHE [None]
  - HYPOAESTHESIA [None]
  - LOSS OF CONSCIOUSNESS [None]
  - MOVEMENT DISORDER [None]
  - MULTIPLE SCLEROSIS [None]
  - MUSCULOSKELETAL STIFFNESS [None]
  - PAIN IN EXTREMITY [None]
  - PARAESTHESIA [None]
  - PRURITUS [None]
